FAERS Safety Report 20550829 (Version 2)
Quarter: 2022Q1

REPORT INFORMATION
  Report Type: Spontaneous
  Country: US (occurrence: None)
  Receive Date: 20220304
  Receipt Date: 20220304
  Transmission Date: 20220423
  Serious: Yes (Other)
  Sender: FDA-Public Use
  Company Number: US-Hikma Pharmaceuticals-US-H14001-22-00539

PATIENT
  Age: 10 Year
  Sex: Female

DRUGS (5)
  1. PREDNISONE [Suspect]
     Active Substance: PREDNISONE
     Indication: Facial paralysis
     Dosage: UNKNOWN
     Route: 048
  2. METHYLPREDNISOLONE [Suspect]
     Active Substance: METHYLPREDNISOLONE
     Indication: Inflammation
     Route: 042
  3. VALACYCLOVIR [Concomitant]
     Active Substance: VALACYCLOVIR HYDROCHLORIDE
     Indication: Facial paralysis
     Dosage: UNKNOWN
     Route: 048
  4. DOXYCYCLINE [Concomitant]
     Active Substance: DOXYCYCLINE
     Indication: Cat scratch disease
     Dosage: UNKNOWN
     Route: 048
  5. RIFAMPIN [Concomitant]
     Active Substance: RIFAMPIN
     Indication: Cat scratch disease
     Dosage: UNKNOWN
     Route: 048

REACTIONS (4)
  - Eye inflammation [Recovered/Resolved]
  - Condition aggravated [Recovered/Resolved]
  - Retinitis viral [Recovered/Resolved]
  - Herpes simplex [Recovered/Resolved]
